FAERS Safety Report 7962459-2 (Version None)
Quarter: 2011Q4

REPORT INFORMATION
  Report Type: 
  Country: None (occurrence: None)
  Receive Date: 20111207
  Receipt Date: 20111201
  Transmission Date: 20120403
  Serious: Yes (Other)
  Sender: FDA-Public Use
  Company Number: US-ASTRAZENECA-2011SE73146

PATIENT
  Age: 64 Year
  Sex: Female
  Weight: 75.7 kg

DRUGS (15)
  1. SEROQUEL XR [Suspect]
     Indication: DEPRESSION
     Route: 048
  2. TRANQUILIZERS [Concomitant]
  3. SLEPING PILLS [Concomitant]
  4. SEROQUEL XR [Suspect]
     Indication: PANIC ATTACK
     Route: 048
  5. WELLBUTRIN [Concomitant]
  6. SEROQUEL XR [Suspect]
     Indication: ANXIETY
     Route: 048
  7. SEROQUEL XR [Suspect]
     Indication: POST-TRAUMATIC STRESS DISORDER
     Route: 048
  8. HALICON [Concomitant]
  9. CLONEPINE [Concomitant]
  10. PERCET [Concomitant]
     Indication: PAIN
  11. NEURONTIN [Concomitant]
  12. CELEXA [Concomitant]
  13. SEROQUEL XR [Suspect]
     Indication: BIPOLAR DISORDER
     Route: 048
  14. THYROID PILLS [Concomitant]
  15. JANICON [Concomitant]
     Indication: BLOOD GLUCOSE ABNORMAL

REACTIONS (3)
  - JOINT DISLOCATION [None]
  - ACCIDENT AT HOME [None]
  - ROTATOR CUFF SYNDROME [None]
